FAERS Safety Report 15432336 (Version 4)
Quarter: 2019Q1

REPORT INFORMATION
  Report Type: Report from Study
  Country: None (occurrence: US)
  Receive Date: 20180926
  Receipt Date: 20190204
  Transmission Date: 20190417
  Serious: Yes (Other)
  Sender: FDA-Public Use
  Company Number: US-ABBVIE-18K-163-2495553-00

PATIENT
  Age: 54 Year
  Sex: Male

DRUGS (5)
  1. HUMIRA [Suspect]
     Active Substance: ADALIMUMAB
     Dosage: DAY 8 ONWARDS
     Route: 058
     Dates: start: 20180718, end: 201809
  2. HUMIRA [Suspect]
     Active Substance: ADALIMUMAB
     Indication: PSORIASIS
     Dosage: DAY 1
     Route: 058
     Dates: start: 201807, end: 201807
  3. HUMIRA [Suspect]
     Active Substance: ADALIMUMAB
     Route: 058
     Dates: start: 201812, end: 201812
  4. HUMIRA [Suspect]
     Active Substance: ADALIMUMAB
     Route: 058
     Dates: start: 20190108
  5. HUMIRA [Suspect]
     Active Substance: ADALIMUMAB
     Route: 058
     Dates: start: 201811, end: 201812

REACTIONS (8)
  - Injection site pain [Unknown]
  - Intentional product misuse [Unknown]
  - Disability [Recovered/Resolved]
  - Ligament rupture [Recovered/Resolved]
  - Fatigue [Not Recovered/Not Resolved]
  - Skin irritation [Unknown]
  - Hyperhidrosis [Not Recovered/Not Resolved]
  - Psoriasis [Recovered/Resolved]

NARRATIVE: CASE EVENT DATE: 2018
